FAERS Safety Report 7639321-8 (Version None)
Quarter: 2011Q3

REPORT INFORMATION
  Report Type: 
  Country: None (occurrence: None)
  Receive Date: 20110727
  Receipt Date: 20110718
  Transmission Date: 20111222
  Serious: Yes (Hospitalization)
  Sender: FDA-Public Use
  Company Number: PHHY2011US65531

PATIENT
  Sex: Male

DRUGS (1)
  1. EXJADE [Suspect]
     Indication: HAEMOCHROMATOSIS
     Dosage: 625 MG, DAILY
     Route: 048
     Dates: start: 20110101, end: 20110701

REACTIONS (2)
  - LIMB INJURY [None]
  - DRUG DOSE OMISSION [None]
